FAERS Safety Report 7431162-X (Version None)
Quarter: 2011Q2

REPORT INFORMATION
  Report Type: 
  Country: None (occurrence: None)
  Receive Date: 20110421
  Receipt Date: 20110411
  Transmission Date: 20111010
  Serious: Yes (Other)
  Sender: FDA-Public Use
  Company Number: US-NAPPMUNDI-DEU-2011-0007132

PATIENT
  Age: 49 Year
  Sex: Male

DRUGS (3)
  1. PIPERACILLIN W/TAZOBACTAM          /01606301/ [Concomitant]
     Dosage: 3.375 G, THRICE
     Route: 042
  2. HYDROMORPHONE HCL [Suspect]
     Indication: PAIN
     Dosage: UNK UNK, SEE TEXT
     Route: 051
  3. HEPARIN [Concomitant]
     Indication: THROMBOSIS PROPHYLAXIS

REACTIONS (2)
  - SINUS ARREST [None]
  - BRADYCARDIA [None]
